FAERS Safety Report 16967216 (Version 1)
Quarter: 2019Q4

REPORT INFORMATION
  Report Type: Spontaneous
  Country: US (occurrence: US)
  Receive Date: 20191028
  Receipt Date: 20191028
  Transmission Date: 20200122
  Serious: No
  Sender: FDA-Public Use
  Company Number: US-IBSA PHARMA-TIR-2019-0418

PATIENT
  Age: 66 Year
  Sex: Female

DRUGS (1)
  1. TIROSINT [Suspect]
     Active Substance: LEVOTHYROXINE SODIUM
     Indication: THYROIDECTOMY
     Dosage: 50MCG DAILY
     Route: 048

REACTIONS (2)
  - Nervousness [Unknown]
  - Feeling jittery [Unknown]

NARRATIVE: CASE EVENT DATE: 201904
